FAERS Safety Report 17776354 (Version 3)
Quarter: 2022Q1

REPORT INFORMATION
  Report Type: Report from Study
  Country: US (occurrence: US)
  Receive Date: 20200513
  Receipt Date: 20220210
  Transmission Date: 20220424
  Serious: Yes (Death, Hospitalization, Other)
  Sender: FDA-Public Use
  Company Number: US-ACADIA PHARMACEUTICALS INC.-ACA-2019-013478

PATIENT
  Age: 78 Year
  Sex: Female

DRUGS (3)
  1. NUPLAZID [Suspect]
     Active Substance: PIMAVANSERIN TARTRATE
     Indication: Parkinson^s disease
     Dosage: 34 MG, QD
     Route: 048
     Dates: start: 20181031, end: 20220116
  2. SINAMET [Concomitant]
  3. XADAGO [Concomitant]
     Active Substance: SAFINAMIDE MESYLATE

REACTIONS (4)
  - COVID-19 [Recovered/Resolved]
  - Parkinson^s disease [Unknown]
  - Dementia [Unknown]
  - Drug ineffective [Unknown]

NARRATIVE: CASE EVENT DATE: 20220105
